FAERS Safety Report 7801057-8 (Version None)
Quarter: 2011Q4

REPORT INFORMATION
  Report Type: 
  Country: None (occurrence: None)
  Receive Date: 20111007
  Receipt Date: 20110930
  Transmission Date: 20120403
  Serious: No
  Sender: FDA-Public Use
  Company Number: US-BIOGENIDEC-2011BI033811

PATIENT
  Sex: Female

DRUGS (3)
  1. TYSABRI [Suspect]
     Indication: MULTIPLE SCLEROSIS
     Route: 042
     Dates: start: 20091120, end: 20110701
  2. AVONEX [Concomitant]
     Indication: MULTIPLE SCLEROSIS
     Route: 030
  3. AVONEX [Concomitant]
     Route: 030
     Dates: start: 20031111

REACTIONS (8)
  - RASH VESICULAR [None]
  - URINARY TRACT INFECTION [None]
  - BLOOD IMMUNOGLOBULIN G DECREASED [None]
  - BRONCHOSPASM [None]
  - INFECTION [None]
  - BLOOD IMMUNOGLOBULIN M DECREASED [None]
  - STAPHYLOCOCCAL INFECTION [None]
  - RASH [None]
